FAERS Safety Report 26126139 (Version 1)
Quarter: 2025Q4

REPORT INFORMATION
  Report Type: Spontaneous
  Country: EU (occurrence: EU)
  Receive Date: 20251205
  Receipt Date: 20251205
  Transmission Date: 20260117
  Serious: Yes (Other)
  Sender: SUNOVION
  Company Number: None

PATIENT
  Age: 62 Year
  Sex: Male
  Weight: 106 kg

DRUGS (3)
  1. ORGOVYX [Suspect]
     Active Substance: RELUGOLIX
     Indication: Prostate cancer
     Dosage: STRENGTH: 120 MG
     Dates: start: 20240601, end: 20240915
  2. NEBIVOLOL HYDROCHLORIDE [Concomitant]
     Active Substance: NEBIVOLOL HYDROCHLORIDE
     Indication: Hypertension
     Dosage: STRENGTH: 5 MG, QUADRISCORED TABLET
  3. EZETIMIBE\SIMVASTATIN [Concomitant]
     Active Substance: EZETIMIBE\SIMVASTATIN
     Indication: Cardiovascular event prophylaxis
     Dosage: STRENGTH: 10 MG/20 MG

REACTIONS (1)
  - Lipomatosis [Not Recovered/Not Resolved]

NARRATIVE: CASE EVENT DATE: 20240815
